FAERS Safety Report 17246303 (Version 3)
Quarter: 2021Q2

REPORT INFORMATION
  Report Type: Spontaneous
  Country: US (occurrence: US)
  Receive Date: 20200108
  Receipt Date: 20210526
  Transmission Date: 20210716
  Serious: Yes (Other)
  Sender: FDA-Public Use
  Company Number: US-PFIZER INC-2020005709

PATIENT
  Age: 65 Year
  Sex: Female

DRUGS (5)
  1. LOSARTAN. [Suspect]
     Active Substance: LOSARTAN
     Dosage: UNK
  2. LIPITOR [Concomitant]
     Active Substance: ATORVASTATIN CALCIUM
     Dosage: UNK
  3. HYDROCHLOROTHIAZIDE/LOSARTAN POTASSIUM [Suspect]
     Active Substance: HYDROCHLOROTHIAZIDE\LOSARTAN POTASSIUM
     Dosage: UNK
  4. ZOLOFT [Concomitant]
     Active Substance: SERTRALINE HYDROCHLORIDE
     Dosage: UNK
     Dates: start: 1976
  5. CEFUROXIME. [Suspect]
     Active Substance: CEFUROXIME
     Dosage: UNK

REACTIONS (6)
  - Drug hypersensitivity [Unknown]
  - Urticaria [Unknown]
  - Rash [Unknown]
  - Throat tightness [Unknown]
  - Drug ineffective [Unknown]
  - Dyspnoea [Unknown]
